FAERS Safety Report 6816512-7 (Version None)
Quarter: 2010Q3

REPORT INFORMATION
  Report Type: 
  Country: None (occurrence: None)
  Receive Date: 20100706
  Receipt Date: 20100315
  Transmission Date: 20110219
  Serious: Yes (Hospitalization)
  Sender: FDA-Public Use
  Company Number: US-ASTRAZENECA-2009SE20184

PATIENT
  Age: 20545 Day
  Sex: Male
  Weight: 86.2 kg

DRUGS (8)
  1. SEROQUEL [Suspect]
     Indication: SLEEP DISORDER
     Route: 048
     Dates: start: 20040101
  2. SEROQUEL [Suspect]
     Indication: BIPOLAR DISORDER
     Route: 048
     Dates: start: 20040101
  3. SEROQUEL [Suspect]
     Route: 048
     Dates: start: 20041203
  4. SEROQUEL [Suspect]
     Route: 048
     Dates: start: 20041203
  5. RISPERDAL [Concomitant]
  6. ZYPREXA [Concomitant]
  7. PAROXETINE HCL [Concomitant]
     Dosage: 30 TO 60 MG DAILY
     Dates: start: 20041203
  8. SIMVASTATIN [Concomitant]
     Indication: BLOOD CHOLESTEROL INCREASED
     Dates: start: 20040419

REACTIONS (4)
  - CHRONIC OBSTRUCTIVE PULMONARY DISEASE [None]
  - PNEUMONIA [None]
  - PNEUMONIA STAPHYLOCOCCAL [None]
  - TYPE 2 DIABETES MELLITUS [None]
